FAERS Safety Report 7645248-8 (Version None)
Quarter: 2011Q3

REPORT INFORMATION
  Report Type: 
  Country: None (occurrence: None)
  Receive Date: 20110729
  Receipt Date: 20110726
  Transmission Date: 20111222
  Serious: Yes (Disabling)
  Sender: FDA-Public Use
  Company Number: US-MERCK-1107USA03581

PATIENT
  Sex: Female

DRUGS (2)
  1. FOSAMAX [Suspect]
     Route: 048
     Dates: start: 20070101, end: 20101101
  2. ACTONEL [Suspect]
     Route: 065
     Dates: start: 20060101, end: 20081201

REACTIONS (2)
  - FEMUR FRACTURE [None]
  - SKELETAL INJURY [None]
